FAERS Safety Report 12783913 (Version 1)
Quarter: 2016Q3

REPORT INFORMATION
  Report Type: Spontaneous
  Country: US (occurrence: US)
  Receive Date: 20160927
  Receipt Date: 20160927
  Transmission Date: 20161109
  Serious: No
  Sender: FDA-Public Use
  Company Number: US-ELI_LILLY_AND_COMPANY-US201609007596

PATIENT
  Age: 25 Year
  Sex: Female
  Weight: 70.3 kg

DRUGS (4)
  1. CYMBALTA [Suspect]
     Active Substance: DULOXETINE HYDROCHLORIDE
     Indication: PRODUCT USED FOR UNKNOWN INDICATION
     Dosage: UNK UNK, UNKNOWN
     Route: 065
     Dates: start: 201608
  2. REMODULIN [Suspect]
     Active Substance: TREPROSTINIL
     Indication: PULMONARY ARTERIAL HYPERTENSION
     Dosage: 0.025 ?G/KG, UNKNOWN
     Route: 042
     Dates: start: 20130109
  3. SILDENAFIL CITRATE. [Concomitant]
     Active Substance: SILDENAFIL CITRATE
     Dosage: UNK, UNKNOWN
     Route: 065
  4. COUMADIN [Concomitant]
     Active Substance: WARFARIN SODIUM
     Dosage: UNK, UNKNOWN
     Route: 065

REACTIONS (3)
  - Tooth extraction [Unknown]
  - Headache [Unknown]
  - Tooth injury [Unknown]

NARRATIVE: CASE EVENT DATE: 201608
